FAERS Safety Report 8000859-5 (Version None)
Quarter: 2011Q4

REPORT INFORMATION
  Report Type: 
  Country: None (occurrence: None)
  Receive Date: 20111222
  Receipt Date: 20111215
  Transmission Date: 20120403
  Serious: Yes (Other)
  Sender: FDA-Public Use
  Company Number: US-JNJFOC-20111208184

PATIENT

DRUGS (2)
  1. REMICADE [Suspect]
     Indication: PRODUCT USED FOR UNKNOWN INDICATION
     Route: 042
  2. ALL OTHER THERAPEUTIC PRODUCTS [Concomitant]
     Indication: PREMEDICATION
     Route: 065

REACTIONS (1)
  - CHEST PAIN [None]
